FAERS Safety Report 18111641 (Version 2)
Quarter: 2020Q3

REPORT INFORMATION
  Report Type: Spontaneous
  Country: US (occurrence: US)
  Receive Date: 20200805
  Receipt Date: 20200906
  Transmission Date: 20201103
  Serious: No
  Sender: FDA-Public Use
  Company Number: US-SA-2020SA199035

PATIENT

DRUGS (1)
  1. LANTUS [Suspect]
     Active Substance: INSULIN GLARGINE
     Indication: TYPE 2 DIABETES MELLITUS
     Dosage: 8 IU, HS
     Route: 065
     Dates: start: 20200722

REACTIONS (5)
  - Injection site bruising [Unknown]
  - Device operational issue [Unknown]
  - Multiple use of single-use product [Unknown]
  - Injection site pain [Unknown]
  - Wrong technique in device usage process [Unknown]
